FAERS Safety Report 14652895 (Version 1)
Quarter: 2018Q1

REPORT INFORMATION
  Report Type: Spontaneous
  Country: US (occurrence: US)
  Receive Date: 20180319
  Receipt Date: 20180319
  Transmission Date: 20180509
  Serious: Yes (Other)
  Sender: FDA-Public Use
  Company Number: US-JNJFOC-20180312687

PATIENT

DRUGS (1)
  1. LISTERINE ANTISEPTIC MOUTHWASH [Suspect]
     Active Substance: EUCALYPTOL\MENTHOL\METHYL SALICYLATE\THYMOL
     Indication: PRODUCT USED FOR UNKNOWN INDICATION
     Route: 065

REACTIONS (1)
  - Burns third degree [Unknown]
